FAERS Safety Report 18223077 (Version 1)
Quarter: 2020Q3

REPORT INFORMATION
  Report Type: Spontaneous
  Country: US (occurrence: US)
  Receive Date: 20200902
  Receipt Date: 20200902
  Transmission Date: 20201103
  Serious: Yes (Death, Hospitalization)
  Sender: FDA-Public Use
  Company Number: US-PFIZER INC-2020338752

PATIENT
  Age: 26 Year
  Sex: Female

DRUGS (1)
  1. NARDIL [Suspect]
     Active Substance: PHENELZINE SULFATE
     Dosage: UNK (INGESTING 15 TO 20)
     Route: 048

REACTIONS (19)
  - Headache [Unknown]
  - Confusional state [Unknown]
  - Sinus tachycardia [Unknown]
  - Muscle rigidity [Unknown]
  - Acidosis [Unknown]
  - Sinus bradycardia [Fatal]
  - Opisthotonus [Unknown]
  - Overdose [Fatal]
  - Pulmonary congestion [Fatal]
  - Dysarthria [Unknown]
  - Tremor [Unknown]
  - Ventricular fibrillation [Fatal]
  - Agitation [Unknown]
  - Hypotension [Unknown]
  - Oliguria [Unknown]
  - Hyperkalaemia [Unknown]
  - Somnolence [Unknown]
  - Hyperhidrosis [Unknown]
  - Mydriasis [Unknown]
